FAERS Safety Report 16843080 (Version 1)
Quarter: 2019Q3

REPORT INFORMATION
  Report Type: Spontaneous
  Country: US (occurrence: US)
  Receive Date: 20190924
  Receipt Date: 20190924
  Transmission Date: 20191005
  Serious: No
  Sender: FDA-Public Use
  Company Number: US-ALLERGAN-1931271US

PATIENT
  Sex: Female
  Weight: 65.77 kg

DRUGS (2)
  1. ESCITALOPRAM OXALATE UNK [Suspect]
     Active Substance: ESCITALOPRAM OXALATE
     Indication: OBSESSIVE-COMPULSIVE DISORDER
  2. ESCITALOPRAM OXALATE UNK [Suspect]
     Active Substance: ESCITALOPRAM OXALATE
     Indication: ANXIETY
     Dosage: 30 MG, QD

REACTIONS (4)
  - Feeling jittery [Unknown]
  - Abnormal behaviour [Unknown]
  - Off label use [Unknown]
  - Wrong technique in product usage process [Unknown]
